FAERS Safety Report 10084550 (Version 1)
Quarter: 2014Q2

REPORT INFORMATION
  Report Type: Spontaneous
  Country: US (occurrence: None)
  Receive Date: 20140404
  Receipt Date: 20140404
  Transmission Date: 20141212
  Serious: No
  Sender: FDA-Public Use
  Company Number: 1350819

PATIENT
  Age: 61 Year
  Sex: Female

DRUGS (3)
  1. PERJETA [Suspect]
     Indication: BREAST CANCER METASTATIC
     Dosage: UNKNOWN
  2. HERCEPTIN [Suspect]
     Indication: BREAST CANCER METASTATIC
  3. DOCETAXEL [Concomitant]

REACTIONS (1)
  - Burning sensation [None]
